FAERS Safety Report 9377683 (Version 2)
Quarter: 2013Q3

REPORT INFORMATION
  Report Type: Spontaneous
  Country: NL (occurrence: NL)
  Receive Date: 20130701
  Receipt Date: 20130703
  Transmission Date: 20140515
  Serious: Yes (Other)
  Sender: FDA-Public Use
  Company Number: NL-BAYER-2013-077470

PATIENT
  Sex: Female

DRUGS (1)
  1. MIRENA [Suspect]
     Indication: MIGRAINE
     Dosage: 20 MCG/24HR, CONT
     Route: 015
     Dates: start: 201305, end: 20130621

REACTIONS (8)
  - Genital haemorrhage [Recovering/Resolving]
  - Dizziness [Recovered/Resolved]
  - Fatigue [None]
  - Migraine [None]
  - Somnolence [None]
  - Altered state of consciousness [None]
  - Off label use [None]
  - Syncope [None]
